FAERS Safety Report 4302349-X (Version None)
Quarter: 2004Q1

REPORT INFORMATION
  Report Type: 
  Country: None (occurrence: None)
  Receive Date: 20040220
  Receipt Date: 20040206
  Transmission Date: 20041129
  Serious: Yes (Death, Hospitalization, Other)
  Sender: FDA-Public Use
  Company Number: USA-2003-0009435

PATIENT
  Age: 48 Year
  Sex: Male
  Weight: 86.2 kg

DRUGS (13)
  1. OXYCONTIN [Suspect]
     Indication: PAIN
     Dosage: SEE TEXT, ORAL
     Route: 048
     Dates: end: 20030401
  2. SOMA [Suspect]
     Indication: MUSCLE SPASMS
     Dosage: QID, ORAL
     Route: 048
     Dates: start: 19980101, end: 20030101
  3. MEPOBRAMATE (MEPROBAMATE) [Suspect]
  4. XANAX [Concomitant]
     Dosage: 2 MG, TID, ORAL
     Route: 048
     Dates: start: 19990101, end: 20030101
  5. LORCET-HD [Suspect]
     Indication: PAIN
     Dosage: 1 TABLET, QID, ORAL
     Route: 048
  6. HALCION [Concomitant]
  7. AMBIEN [Concomitant]
  8. COLACE (DOCUSATE SODIUM) [Concomitant]
  9. PERI-COLACE (DOCUSATE SODIUM, SENNOSIDE A+B) [Suspect]
  10. VICODIN [Concomitant]
  11. LEVAQUIN [Concomitant]
  12. LOVENOX [Concomitant]
  13. MORPHINE [Concomitant]

REACTIONS (41)
  - ABDOMINAL PAIN [None]
  - ACCIDENTAL OVERDOSE [None]
  - AGITATION [None]
  - ANKLE FRACTURE [None]
  - ARTHRALGIA [None]
  - BACK PAIN [None]
  - BASAL CELL CARCINOMA [None]
  - BLISTER [None]
  - BODY TEMPERATURE INCREASED [None]
  - CELLULITIS [None]
  - CLOSED HEAD INJURY [None]
  - COMMUNICATION DISORDER [None]
  - CONFUSIONAL STATE [None]
  - DISORIENTATION [None]
  - DRUG DEPENDENCE [None]
  - DRUG TOXICITY [None]
  - DRUG WITHDRAWAL SYNDROME [None]
  - ERECTILE DYSFUNCTION [None]
  - ERYTHEMA [None]
  - EXCORIATION [None]
  - FAILURE OF IMPLANT [None]
  - FALL [None]
  - FATIGUE [None]
  - FIBULA FRACTURE [None]
  - FOOT FRACTURE [None]
  - HALLUCINATION [None]
  - HEADACHE [None]
  - IMPAIRED HEALING [None]
  - JOINT EFFUSION [None]
  - JOINT SWELLING [None]
  - LIMB DISCOMFORT [None]
  - MULTIPLE DRUG OVERDOSE [None]
  - NAUSEA [None]
  - RESTLESSNESS [None]
  - ROAD TRAFFIC ACCIDENT [None]
  - SKIN LACERATION [None]
  - SUBARACHNOID HAEMORRHAGE [None]
  - TREMOR [None]
  - WOUND [None]
  - WOUND INFECTION [None]
  - WOUND SECRETION [None]
